FAERS Safety Report 8296199-X (Version None)
Quarter: 2012Q2

REPORT INFORMATION
  Report Type: 
  Country: None (occurrence: None)
  Receive Date: 20120418
  Receipt Date: 20120409
  Transmission Date: 20120825
  Serious: Yes (Hospitalization, Other)
  Sender: FDA-Public Use
  Company Number: US-ELI_LILLY_AND_COMPANY-US201204002986

PATIENT
  Age: 87 Year
  Sex: Female

DRUGS (1)
  1. HUMULIN 70/30 [Suspect]
     Dosage: UNK, UNKNOWN

REACTIONS (2)
  - HIP FRACTURE [None]
  - FALL [None]
